FAERS Safety Report 11610621 (Version 2)
Quarter: 2015Q4

REPORT INFORMATION
  Report Type: Spontaneous
  Country: US (occurrence: US)
  Receive Date: 20151008
  Receipt Date: 20151106
  Transmission Date: 20160304
  Serious: Yes (Other)
  Sender: FDA-Public Use
  Company Number: US-AUROBINDO-AUR-APL-2015-08917

PATIENT
  Age: 63 Year
  Sex: Male

DRUGS (3)
  1. BUPIVACAINE HYDROCHLORIDE. [Suspect]
     Active Substance: BUPIVACAINE HYDROCHLORIDE
     Indication: POSTOPERATIVE ANALGESIA
     Dosage: 0.2% AT 10 ML/HOUR FOR THE FIRST 24 HOURS
     Route: 065
  2. BUPIVACAINE HYDROCHLORIDE. [Suspect]
     Active Substance: BUPIVACAINE HYDROCHLORIDE
     Dosage: 0.1 % AT 10 ML/HOUR FOR THE NEXT 24 HOURS
     Route: 065
  3. BUPIVACAINE HYDROCHLORIDE. [Suspect]
     Active Substance: BUPIVACAINE HYDROCHLORIDE
     Indication: SPINAL ANAESTHESIA
     Dosage: 0.75%, 15 MG
     Route: 065

REACTIONS (1)
  - Back pain [Recovered/Resolved]
